FAERS Safety Report 8509684-X (Version None)
Quarter: 2012Q3

REPORT INFORMATION
  Report Type: 
  Country: None (occurrence: None)
  Receive Date: 20120713
  Receipt Date: 20120706
  Transmission Date: 20120928
  Serious: Yes (Other)
  Sender: FDA-Public Use
  Company Number: US-ASTRAZENECA-2012SE40338

PATIENT
  Age: 57 Year
  Sex: Male

DRUGS (1)
  1. SEROQUEL XR [Suspect]
     Route: 048

REACTIONS (6)
  - LOWER LIMB FRACTURE [None]
  - ASPERGER'S DISORDER [None]
  - THERAPEUTIC RESPONSE UNEXPECTED [None]
  - FALL [None]
  - DEPRESSION [None]
  - SKELETAL INJURY [None]
